FAERS Safety Report 10228362 (Version 1)
Quarter: 2014Q2

REPORT INFORMATION
  Report Type: Spontaneous
  Country: FR (occurrence: FR)
  Receive Date: 20140610
  Receipt Date: 20140610
  Transmission Date: 20141212
  Serious: Yes (Death)
  Sender: FDA-Public Use
  Company Number: FR-TEVA-486569ISR

PATIENT
  Age: 41 Year
  Sex: Male
  Weight: 85 kg

DRUGS (4)
  1. CARBAMAZEPINE TEVA [Suspect]
     Dosage: 600 MILLIGRAM DAILY;
  2. TEGRETOL [Suspect]
     Indication: EPILEPSY
     Dosage: 600 MILLIGRAM DAILY; LONG-STANDING TREATMENT, PATIENT BALANCED
  3. URBANYL 10 MG [Suspect]
     Dosage: 20 MILLIGRAM DAILY; LONG-STANDING TREATMENT, PATIENT BALANCED
  4. INEXIUM 20 MG [Suspect]
     Dosage: LONG-STANDING TREATMENT, PATIENT BALANCED

REACTIONS (4)
  - Drug ineffective [Fatal]
  - Convulsions local [Fatal]
  - Generalised tonic-clonic seizure [Fatal]
  - Cardiac arrest [Fatal]
